FAERS Safety Report 16853819 (Version 2)
Quarter: 2020Q1

REPORT INFORMATION
  Report Type: Other
  Country: PT (occurrence: PT)
  Receive Date: 20190926
  Receipt Date: 20200210
  Transmission Date: 20200409
  Serious: Yes (Hospitalization, Other)
  Sender: FDA-Public Use
  Company Number: PT-CELLTRION INC.-2019PT025061

PATIENT

DRUGS (6)
  1. TRASTUZUMAB EMTANSINE [Suspect]
     Active Substance: ADO-TRASTUZUMAB EMTANSINE
     Indication: BREAST CANCER
     Dosage: 3.6 MG/KG EVERY 3 WEEKS (MOST RECENT DOSE PRIOR TO THE EVENT 17MAY2019 AND 28JAN2019)
     Route: 042
     Dates: start: 20180806
  2. PERTUZUMAB. [Suspect]
     Active Substance: PERTUZUMAB
     Indication: BREAST CANCER
     Dosage: 420 MG EVERY 3 WEEKS (MOST RECENT DOSE PRIOR TO THE EVENT: 06JUN2017 AND 06APR2018)
     Route: 042
     Dates: start: 20170606
  3. PARACETAMOL [Concomitant]
     Active Substance: ACETAMINOPHEN
     Dosage: UNK
     Route: 065
     Dates: start: 20170704
  4. TAXOTERE [Suspect]
     Active Substance: DOCETAXEL
     Indication: BREAST CANCER
     Dosage: 122 MG EVERY 3 WEEKS (MOST RECENT DOSE PRIOR TO THE EVENT: 06JUN2017, 04JUL2017 AND 18JUL2017)
     Route: 042
     Dates: start: 20170606
  5. BISOPROLOL [Concomitant]
     Active Substance: BISOPROLOL
     Dosage: UNK
     Route: 065
  6. TRASTUZUMAB (UNKNOWN) [Suspect]
     Active Substance: TRASTUZUMAB
     Indication: BREAST CANCER
     Dosage: 342 MG EVERY 3 WEEKS (MOST RECENT DOSE PRIOR TO THE EVENT: 06JUN2017 AND 06APR2018)
     Route: 042
     Dates: start: 20170606

REACTIONS (3)
  - Neutropenia [Recovering/Resolving]
  - Febrile neutropenia [Recovered/Resolved]
  - Neutrophilia [Recovered/Resolved]

NARRATIVE: CASE EVENT DATE: 20170704
